FAERS Safety Report 7242424-3 (Version None)
Quarter: 2011Q1

REPORT INFORMATION
  Report Type: 
  Country: None (occurrence: None)
  Receive Date: 20110125
  Receipt Date: 20110118
  Transmission Date: 20110831
  Serious: No
  Sender: FDA-Public Use
  Company Number: US-BIOGENIDEC-2011BI002278

PATIENT
  Age: 33 Year
  Sex: Female

DRUGS (1)
  1. TYSABRI [Suspect]
     Indication: MULTIPLE SCLEROSIS
     Route: 042
     Dates: start: 20101223

REACTIONS (5)
  - THROAT IRRITATION [None]
  - COUGH [None]
  - PAIN [None]
  - UPPER RESPIRATORY TRACT CONGESTION [None]
  - OROPHARYNGEAL PAIN [None]
